FAERS Safety Report 4455677-1 (Version None)
Quarter: 2004Q3

REPORT INFORMATION
  Report Type: 
  Country: None (occurrence: None)
  Receive Date: 20040917
  Receipt Date: 20040906
  Transmission Date: 20050211
  Serious: Yes (Hospitalization)
  Sender: FDA-Public Use
  Company Number: 2004AP04724

PATIENT
  Age: 66 Year
  Sex: Female

DRUGS (3)
  1. ARIMIDEX [Suspect]
     Indication: BREAST CANCER
     Dosage: 1 MG DAILY PO
     Route: 048
     Dates: start: 20030101
  2. NORVASC [Concomitant]
  3. GLIMICRON [Concomitant]

REACTIONS (1)
  - NEPHROTIC SYNDROME [None]
